FAERS Safety Report 16257845 (Version 1)
Quarter: 2019Q2

REPORT INFORMATION
  Report Type: Spontaneous
  Country: CH (occurrence: CH)
  Receive Date: 20190430
  Receipt Date: 20190430
  Transmission Date: 20190711
  Serious: Yes (Death, Hospitalization)
  Sender: FDA-Public Use
  Company Number: CH-JNJFOC-20190443795

PATIENT
  Sex: Female

DRUGS (7)
  1. XARELTO [Suspect]
     Active Substance: RIVAROXABAN
     Indication: THROMBOSIS PROPHYLAXIS
     Route: 048
     Dates: start: 20190222, end: 20190305
  2. ATORVASTATIN [Concomitant]
     Active Substance: ATORVASTATIN
     Route: 048
     Dates: end: 20190305
  3. ASPIRIN CARDIO [Concomitant]
     Active Substance: ASPIRIN
     Route: 048
     Dates: start: 2016, end: 20190305
  4. NEBILET [Concomitant]
     Active Substance: NEBIVOLOL
     Route: 048
  5. ASPIRIN CARDIO [Concomitant]
     Active Substance: ASPIRIN
     Route: 048
  6. PANTOPRAZOLE [Concomitant]
     Active Substance: PANTOPRAZOLE
     Route: 048
  7. PEMBROLIZUMAB. [Suspect]
     Active Substance: PEMBROLIZUMAB
     Indication: BLADDER CANCER
     Route: 065
     Dates: start: 20190206

REACTIONS (2)
  - Acute kidney injury [Fatal]
  - Pulmonary alveolar haemorrhage [Fatal]
